FAERS Safety Report 15677363 (Version 1)
Quarter: 2018Q4

REPORT INFORMATION
  Report Type: Spontaneous
  Country: US (occurrence: US)
  Receive Date: 20181130
  Receipt Date: 20181130
  Transmission Date: 20190205
  Serious: No
  Sender: FDA-Public Use
  Company Number: US-SA-2018SA158214

PATIENT
  Age: 58 Year
  Sex: Female

DRUGS (1)
  1. DULCOLAX PINK [Suspect]
     Active Substance: BISACODYL
     Dosage: 1 DF

REACTIONS (3)
  - Groin pain [Not Recovered/Not Resolved]
  - Medication error [Unknown]
  - Intentional product misuse [Unknown]
